FAERS Safety Report 8715514 (Version 2)
Quarter: 2013Q1

REPORT INFORMATION
  Report Type: Report from Study
  Country: BR (occurrence: BR)
  Receive Date: 20120809
  Receipt Date: 20130329
  Transmission Date: 20140127
  Serious: Yes (Other)
  Sender: FDA-Public Use
  Company Number: BR-ROCHE-1099113

PATIENT
  Sex: Female
  Weight: 70 kg

DRUGS (4)
  1. MABTHERA [Suspect]
     Indication: DERMATOMYOSITIS
     Route: 042
     Dates: start: 20120719
  2. ERITREX [Concomitant]
     Route: 042
  3. PROTOS [Concomitant]
  4. PONDERA [Concomitant]

REACTIONS (2)
  - Fall [Recovered/Resolved]
  - Lower limb fracture [Recovered/Resolved]
